FAERS Safety Report 4351233-4 (Version None)
Quarter: 2004Q2

REPORT INFORMATION
  Report Type: 
  Country: None (occurrence: None)
  Receive Date: 20040428
  Receipt Date: 20040408
  Transmission Date: 20050107
  Serious: Yes (Other)
  Sender: FDA-Public Use
  Company Number: USA040363155

PATIENT
  Age: 56 Year
  Sex: Female

DRUGS (9)
  1. XIGRIS [Suspect]
     Indication: ESCHERICHIA SEPSIS
     Dates: start: 20040318
  2. METFORMIN HCL [Concomitant]
  3. GLYBURIDE [Concomitant]
  4. CANDESARTAN [Concomitant]
  5. NITROFURANTOIN [Concomitant]
  6. ACETAMINOPHEN AND HYDROCODONE BITARTRATE [Concomitant]
  7. LEVOFLOXACIN [Concomitant]
  8. NOREPINEPHRINE [Concomitant]
  9. PHENYLEPHRINE [Concomitant]

REACTIONS (6)
  - ACTIVATED PARTIAL THROMBOPLASTIN TIME PROLONGED [None]
  - COMA [None]
  - DIALYSIS [None]
  - HAEMORRHAGE INTRACRANIAL [None]
  - INTERNATIONAL NORMALISED RATIO INCREASED [None]
  - PLATELET COUNT DECREASED [None]
